FAERS Safety Report 8308454-5 (Version None)
Quarter: 2012Q2

REPORT INFORMATION
  Report Type: 
  Country: None (occurrence: None)
  Receive Date: 20120424
  Receipt Date: 20120413
  Transmission Date: 20120825
  Serious: Yes (Other)
  Sender: FDA-Public Use
  Company Number: US-NAPPMUNDI-USA-2009-0038416

PATIENT
  Age: 33 Year
  Sex: Male

DRUGS (3)
  1. HEROIN [Suspect]
     Indication: DRUG ABUSE
  2. METHAMPHETAMINE [Suspect]
     Indication: DRUG ABUSE
  3. OXYCONTIN [Suspect]
     Indication: PAIN
     Dosage: UNK
     Dates: start: 20080801

REACTIONS (6)
  - OVERDOSE [None]
  - SUBSTANCE ABUSE [None]
  - DRUG WITHDRAWAL SYNDROME [None]
  - POLYSUBSTANCE DEPENDENCE [None]
  - SUICIDE ATTEMPT [None]
  - EUPHORIC MOOD [None]
